FAERS Safety Report 13930571 (Version 4)
Quarter: 2024Q2

REPORT INFORMATION
  Report Type: Spontaneous
  Country: LU (occurrence: LU)
  Receive Date: 20170901
  Receipt Date: 20240624
  Transmission Date: 20240716
  Serious: Yes (Death, Hospitalization, Other)
  Sender: FDA-Public Use
  Company Number: DE-SA-2017SA161624

PATIENT
  Age: 63 Year
  Sex: Female

DRUGS (19)
  1. LEVOFLOXACIN [Suspect]
     Active Substance: LEVOFLOXACIN
     Indication: Antibiotic prophylaxis
     Dosage: UNK
  2. ANTI-THYMOCYTE GLOBULIN (RABBIT) NOS [Suspect]
     Active Substance: LAPINE T-LYMPHOCYTE IMMUNE GLOBULIN
     Indication: Acute myeloid leukaemia
     Dosage: FROM DAYS -4 TO -2
  3. CYTARABINE [Suspect]
     Active Substance: CYTARABINE
     Indication: Acute myeloid leukaemia
     Dosage: 2000 MG/M2 ON DAYS -11 TO -8
  4. FLUDARABINE PHOSPHATE [Suspect]
     Active Substance: FLUDARABINE PHOSPHATE
     Indication: Acute myeloid leukaemia
     Dosage: 30 MG/M2 ON DAYS -11 TO -8
     Route: 065
  5. PIPERACILLIN SODIUM\TAZOBACTAM SODIUM [Suspect]
     Active Substance: PIPERACILLIN SODIUM\TAZOBACTAM SODIUM
     Indication: Antibiotic prophylaxis
     Dosage: UNK
     Route: 065
  6. PIPERACILLIN SODIUM\TAZOBACTAM SODIUM [Suspect]
     Active Substance: PIPERACILLIN SODIUM\TAZOBACTAM SODIUM
     Indication: Pyrexia
  7. MEROPENEM [Suspect]
     Active Substance: MEROPENEM
     Indication: Pyrexia
     Dosage: UNK
     Route: 065
  8. VANCOMYCIN [Suspect]
     Active Substance: VANCOMYCIN
     Indication: Antibiotic prophylaxis
     Dosage: UNK
  9. VANCOMYCIN [Suspect]
     Active Substance: VANCOMYCIN
     Indication: Pyrexia
  10. FLUCONAZOLE [Suspect]
     Active Substance: FLUCONAZOLE
     Dosage: 200 MG
     Route: 065
  11. CEFTAZIDIME [Suspect]
     Active Substance: CEFTAZIDIME
     Indication: Antibiotic prophylaxis
     Dosage: UNK
  12. MYCOPHENOLATE MOFETIL [Suspect]
     Active Substance: MYCOPHENOLATE MOFETIL
     Indication: Acute myeloid leukaemia
     Dosage: UNK
  13. AMSACRINE [Suspect]
     Active Substance: AMSACRINE
     Indication: Acute myeloid leukaemia
     Dosage: 100 MG/M2 ON DAYS -11 TO -8
  14. BUSULFAN [Suspect]
     Active Substance: BUSULFAN
     Indication: Acute myeloid leukaemia
     Dosage: 3.2 MG/KG ON DAYS -7 TO -4
  15. CYCLOSPORINE [Suspect]
     Active Substance: CYCLOSPORINE
     Indication: Acute myeloid leukaemia
     Dosage: UNTIL DAY 100
     Route: 065
  16. AMPHOTERICIN B [Suspect]
     Active Substance: AMPHOTERICIN B
     Indication: Antibiotic prophylaxis
     Dosage: UNK
  17. TIGECYCLINE [Suspect]
     Active Substance: TIGECYCLINE
     Indication: Antibiotic prophylaxis
     Dosage: UNK
  18. CASPOFUNGIN [Suspect]
     Active Substance: CASPOFUNGIN
     Indication: Antibiotic prophylaxis
     Dosage: UNK
  19. MITOXANTRONE [Suspect]
     Active Substance: MITOXANTRONE HYDROCHLORIDE
     Indication: Antibiotic prophylaxis
     Dosage: UNK

REACTIONS (12)
  - Graft versus host disease [Fatal]
  - Inflammation [Fatal]
  - Dysbiosis [Fatal]
  - Diarrhoea [Fatal]
  - Systemic inflammatory response syndrome [Fatal]
  - Escherichia infection [Fatal]
  - Fatigue [Fatal]
  - Abscess [Fatal]
  - Neutropenia [Fatal]
  - Paraspinal abscess [Fatal]
  - Malaise [Fatal]
  - Back pain [Fatal]
